FAERS Safety Report 5357036-6 (Version None)
Quarter: 2007Q2

REPORT INFORMATION
  Report Type: 
  Country: None (occurrence: None)
  Receive Date: 20070612
  Receipt Date: 20070612
  Transmission Date: 20071010
  Serious: No
  Sender: FDA-Public Use
  Company Number: None

PATIENT
  Sex: Male
  Weight: 162.8413 kg

DRUGS (1)
  1. ZOCOR [Suspect]
     Dosage: 40 MG 1 DAILY
     Dates: start: 20070410, end: 20070604

REACTIONS (2)
  - MUSCLE SPASMS [None]
  - PAIN IN EXTREMITY [None]
